FAERS Safety Report 4698631-7 (Version None)
Quarter: 2005Q2

REPORT INFORMATION
  Report Type: 
  Country: None (occurrence: None)
  Receive Date: 20050623
  Receipt Date: 20050125
  Transmission Date: 20051028
  Serious: Yes (Hospitalization)
  Sender: FDA-Public Use
  Company Number: NUBN20050004

PATIENT
  Age: 1 Day
  Sex: Female
  Weight: 3.2 kg

DRUGS (2)
  1. NUBAIN [Suspect]
     Dosage: 10 MG ONCE IV
     Route: 042
     Dates: start: 20041226, end: 20041226
  2. DEROXAT [Suspect]
     Dosage: 10 MG DAILY
     Dates: end: 20041227

REACTIONS (2)
  - HYPOTONIA NEONATAL [None]
  - NEONATAL APNOEIC ATTACK [None]
